FAERS Safety Report 7583601-1 (Version None)
Quarter: 2011Q2

REPORT INFORMATION
  Report Type: 
  Country: None (occurrence: None)
  Receive Date: 20110630
  Receipt Date: 20110623
  Transmission Date: 20111010
  Serious: Yes (Other)
  Sender: FDA-Public Use
  Company Number: A0932789A

PATIENT
  Sex: Female
  Weight: 65 kg

DRUGS (6)
  1. LOTRIDERM [Concomitant]
     Indication: SKIN INFECTION
  2. ADVAIR DISKUS 100/50 [Suspect]
     Indication: ASTHMA
     Dosage: 1PUFF TWICE PER DAY
     Route: 055
  3. ASPIRIN [Concomitant]
  4. VITAMINS + MINERALS [Concomitant]
  5. SYNTHROID [Concomitant]
  6. LIPITOR [Concomitant]

REACTIONS (8)
  - SKIN BACTERIAL INFECTION [None]
  - PRODUCTIVE COUGH [None]
  - INFECTION [None]
  - BRONCHOPNEUMONIA [None]
  - PRODUCT QUALITY ISSUE [None]
  - URINARY TRACT INFECTION [None]
  - RESPIRATORY DISTRESS [None]
  - PNEUMONIA [None]
